FAERS Safety Report 8565486-X (Version None)
Quarter: 2012Q3

REPORT INFORMATION
  Report Type: 
  Country: None (occurrence: None)
  Receive Date: 20120803
  Receipt Date: 20120719
  Transmission Date: 20120928
  Serious: No
  Sender: FDA-Public Use
  Company Number: US-ASTRAZENECA-2012SE50902

PATIENT
  Age: 4314 Week
  Sex: Female

DRUGS (16)
  1. CLONAZEPAM [Concomitant]
     Indication: ANXIETY
  2. DONEPEZIL HCL [Suspect]
     Route: 048
  3. LOVASTATIN [Concomitant]
  4. SERTRALINE HYDROCHLORIDE [Concomitant]
  5. LEVOTHYROXINE SODIUM [Concomitant]
  6. SEROQUEL [Suspect]
     Route: 048
  7. COLESTIPOL HYDROCHLORIDE [Concomitant]
  8. LISINOPRIL [Suspect]
     Route: 048
  9. DONEPEZIL HCL [Suspect]
     Route: 048
  10. GABAPENTIN [Concomitant]
  11. LANSOPRAZOLE [Concomitant]
  12. LUMIGAN [Concomitant]
  13. DONEPEZIL HCL [Suspect]
     Indication: COGNITIVE DISORDER
     Route: 048
     Dates: start: 20100101
  14. DONEPEZIL HCL [Suspect]
     Indication: MEMORY IMPAIRMENT
     Route: 048
     Dates: start: 20100101
  15. CALCIUM W/VITAMIN D [Concomitant]
  16. ASPIRIN [Concomitant]

REACTIONS (3)
  - INSOMNIA [None]
  - NIGHTMARE [None]
  - RASH [None]
